FAERS Safety Report 18263037 (Version 6)
Quarter: 2020Q4

REPORT INFORMATION
  Report Type: Report from Study
  Country: JP (occurrence: JP)
  Receive Date: 20200914
  Receipt Date: 20201123
  Transmission Date: 20210113
  Serious: Yes (Hospitalization)
  Sender: FDA-Public Use
  Company Number: JP-BAYER-2020-192596

PATIENT
  Age: 67 Year
  Sex: Male
  Weight: 46.9 kg

DRUGS (6)
  1. DERMOVATE [Concomitant]
     Active Substance: CLOBETASOL
     Indication: RASH
     Dosage: APPLICATION, QD
     Dates: start: 20200730
  2. DERMOVATE [Concomitant]
     Active Substance: CLOBETASOL
     Indication: RASH
     Dosage: APPLICATION, QD
     Dates: start: 20200730
  3. DAROLUTAMIDE. [Interacting]
     Active Substance: DAROLUTAMIDE
     Indication: SALIVARY GLAND CANCER
     Dosage: 600 MG, QD
     Dates: start: 20200924, end: 20200924
  4. TERAMURO [Concomitant]
     Indication: HYPERTENSION
     Dosage: 1 DF, QD
     Route: 048
     Dates: start: 2015, end: 20200909
  5. ROSUVASTATIN. [Interacting]
     Active Substance: ROSUVASTATIN
     Indication: DYSLIPIDAEMIA
     Dosage: 2.5 MG, QD
     Route: 048
     Dates: start: 2015, end: 20200908
  6. DAROLUTAMIDE. [Suspect]
     Active Substance: DAROLUTAMIDE
     Indication: SALIVARY GLAND CANCER
     Dosage: 600 MG, BID
     Route: 048
     Dates: start: 20200827, end: 20200908

REACTIONS (3)
  - Labelled drug-drug interaction medication error [None]
  - Rhabdomyolysis [Recovered/Resolved]
  - Anaphylactic shock [Recovered/Resolved]

NARRATIVE: CASE EVENT DATE: 20200909
